FAERS Safety Report 6870147-9 (Version None)
Quarter: 2010Q3

REPORT INFORMATION
  Report Type: 
  Country: None (occurrence: None)
  Receive Date: 20100721
  Receipt Date: 20100716
  Transmission Date: 20110219
  Serious: Yes (Hospitalization, Disabling)
  Sender: FDA-Public Use
  Company Number: 005775

PATIENT
  Sex: Female
  Weight: 64 kg

DRUGS (13)
  1. CERTOLIZUMAB PEGOL (CERTOLIZUMAB PEGOL) [Suspect]
     Indication: RHEUMATOID ARTHRITIS
     Dosage: (200 MG 1X/2 WEEKS SUBCUTANEOUS)
     Route: 058
     Dates: start: 20091126, end: 20100107
  2. METHOTREXATE [Concomitant]
  3. DICLOFENAC [Concomitant]
  4. METAMIZOLE [Concomitant]
  5. FOLIC ACID [Concomitant]
  6. RANITIC [Concomitant]
  7. MAGNESIUM VERLA /02089401/ [Concomitant]
  8. CALCIUM W/VITAMIN D /00188401/ [Concomitant]
  9. DEKRISTOL [Concomitant]
  10. METEX [Concomitant]
  11. SULFASALAZINE [Concomitant]
  12. PREDNISOLON /00016201/ [Concomitant]
  13. PROMETHAZINE [Concomitant]

REACTIONS (7)
  - ACQUIRED DIAPHRAGMATIC EVENTRATION [None]
  - GAMMA-GLUTAMYLTRANSFERASE INCREASED [None]
  - HAEMOGLOBIN DECREASED [None]
  - INTERVERTEBRAL DISC PROTRUSION [None]
  - LYMPH NODE TUBERCULOSIS [None]
  - NAUSEA [None]
  - PULMONARY TUBERCULOSIS [None]
